FAERS Safety Report 13953827 (Version 1)
Quarter: 2017Q3

REPORT INFORMATION
  Report Type: Spontaneous
  Country: US (occurrence: US)
  Receive Date: 20170911
  Receipt Date: 20170911
  Transmission Date: 20171128
  Serious: No
  Sender: FDA-Public Use
  Company Number: US-PFIZER INC-2017388668

PATIENT
  Age: 60 Year
  Sex: Female

DRUGS (1)
  1. PHENELZINE SULFATE. [Suspect]
     Active Substance: PHENELZINE SULFATE
     Dosage: UNK
     Dates: start: 1983

REACTIONS (4)
  - Drug ineffective [Unknown]
  - Poor quality drug administered [Unknown]
  - Product storage error [None]
  - Product container seal issue [Unknown]
